FAERS Safety Report 14248665 (Version 1)
Quarter: 2017Q4

REPORT INFORMATION
  Report Type: Spontaneous
  Country: US (occurrence: US)
  Receive Date: 20171203
  Receipt Date: 20171203
  Transmission Date: 20180321
  Serious: Yes (Disabling)
  Sender: FDA-Public Use
  Company Number: None

PATIENT
  Sex: Female
  Weight: 62 kg

DRUGS (2)
  1. CELESTONE-M [Suspect]
     Active Substance: BETAMETHASONE VALERATE
     Indication: ECZEMA
     Route: 061
  2. LOW DOSE NALTREXONE [Concomitant]
     Active Substance: NALTREXONE

REACTIONS (20)
  - Decreased activity [None]
  - Pruritus [None]
  - Skin exfoliation [None]
  - Bedridden [None]
  - Swelling [None]
  - Weight decreased [None]
  - Drug ineffective [None]
  - Skin burning sensation [None]
  - Dry skin [None]
  - Therapy change [None]
  - Erythema [None]
  - Pain [None]
  - Skin wrinkling [None]
  - Drug effect decreased [None]
  - Rash [None]
  - Therapy cessation [None]
  - Skin discolouration [None]
  - Rebound effect [None]
  - Hyperhidrosis [None]
  - Insomnia [None]

NARRATIVE: CASE EVENT DATE: 20150210
